FAERS Safety Report 8491304-4 (Version None)
Quarter: 2012Q3

REPORT INFORMATION
  Report Type: 
  Country: None (occurrence: None)
  Receive Date: 20120706
  Receipt Date: 20120627
  Transmission Date: 20120928
  Serious: Yes (Hospitalization)
  Sender: FDA-Public Use
  Company Number: JP-ASTELLAS-2012JP006056

PATIENT
  Age: 33 Year
  Sex: Female

DRUGS (22)
  1. TACROLIMUS [Suspect]
     Indication: LUPUS NEPHRITIS
     Dosage: 3 MG, UNKNOWN/D
     Route: 048
     Dates: start: 20110525, end: 20110831
  2. MEDROL [Concomitant]
     Dosage: 8 MG, UNKNOWN/D
     Route: 048
     Dates: start: 20070606, end: 20081021
  3. MEDROL [Concomitant]
     Dosage: UNK
     Route: 048
     Dates: end: 20100804
  4. MEDROL [Concomitant]
     Dosage: 24 MG, UNKNOWN/D
     Route: 048
     Dates: start: 20110101, end: 20110308
  5. MEDROL [Concomitant]
     Dosage: 20 MG, UNKNOWN/D
     Route: 048
     Dates: start: 20110309, end: 20110322
  6. TACROLIMUS [Suspect]
     Dosage: 3 MG, UNKNOWN/D
     Route: 048
     Dates: start: 20070606, end: 20090114
  7. TACROLIMUS [Suspect]
     Dosage: 2 MG, UNKNOWN/D
     Route: 048
     Dates: start: 20090114, end: 20100406
  8. MEDROL [Concomitant]
     Dosage: 12 MG, UNKNOWN/D
     Route: 048
     Dates: start: 20070509, end: 20070522
  9. MEDROL [Concomitant]
     Dosage: 10 MG, UNKNOWN/D
     Route: 048
     Dates: start: 20110525, end: 20110831
  10. BUFFERIN [Concomitant]
     Indication: LUPUS NEPHRITIS
     Dosage: 81 MG, UNKNOWN/D
     Route: 048
     Dates: end: 20110831
  11. FAMOTIDINE [Concomitant]
     Indication: PROPHYLAXIS
     Dosage: 10 MG, UNKNOWN/D
     Route: 048
     Dates: end: 20110831
  12. METHYLPREDNISOLONE [Concomitant]
     Indication: LUPUS NEPHRITIS
     Dosage: 0.5 G, UNKNOWN/D
     Route: 065
     Dates: start: 20110101, end: 20110101
  13. CALCIUM LACTATE [Concomitant]
     Indication: PROPHYLAXIS
     Dosage: 2 G, UNKNOWN/D
     Route: 048
     Dates: end: 20110621
  14. ROCALTROL [Concomitant]
     Indication: PROPHYLAXIS
     Dosage: 0.5 UG, UNKNOWN/D
     Route: 048
     Dates: end: 20110831
  15. TACROLIMUS [Suspect]
     Dosage: 2 MG, UNKNOWN/D
     Route: 048
     Dates: start: 20070509, end: 20070605
  16. TACROLIMUS [Suspect]
     Dosage: 3 MG, UNKNOWN/D
     Route: 048
     Dates: start: 20100407, end: 20110101
  17. MEDROL [Concomitant]
     Dosage: 12 MG, UNKNOWN/D
     Route: 048
     Dates: start: 20070523, end: 20070605
  18. MEDROL [Concomitant]
     Dosage: 12 MG, UNKNOWN/D
     Route: 048
     Dates: start: 20110406, end: 20110524
  19. MEDROL [Concomitant]
     Dosage: 8 MG, UNKNOWN/D
     Route: 048
     Dates: start: 20100805, end: 20110101
  20. MEDROL [Concomitant]
     Dosage: 16 MG, UNKNOWN/D
     Route: 048
     Dates: start: 20110323, end: 20110405
  21. MEDROL [Concomitant]
     Indication: LUPUS NEPHRITIS
     Dosage: 16 MG, UNKNOWN/D
     Route: 048
     Dates: start: 20070411, end: 20070508
  22. MEDROL [Concomitant]
     Dosage: 8 MG, UNKNOWN/D
     Route: 048
     Dates: start: 20081022

REACTIONS (1)
  - SYSTEMIC LUPUS ERYTHEMATOSUS [None]
